FAERS Safety Report 5642406-9 (Version None)
Quarter: 2008Q1

REPORT INFORMATION
  Report Type: 
  Country: None (occurrence: None)
  Receive Date: 20080131
  Receipt Date: 20071203
  Transmission Date: 20080703
  Serious: No
  Sender: FDA-Public Use
  Company Number: US200712000586

PATIENT
  Sex: Male

DRUGS (2)
  1. BYETTA [Suspect]
     Dosage: 10 UG, 2/D, SUBCUTANEOUS; 5 UG, SUBCUTANEOUS
     Route: 058
     Dates: start: 20071130, end: 20071130
  2. EXENATIDE (EXENATIDE) [Concomitant]

REACTIONS (1)
  - DRUG DISPENSING ERROR [None]
